FAERS Safety Report 10084307 (Version 1)
Quarter: 2014Q2

REPORT INFORMATION
  Report Type: Spontaneous
  Country: FR (occurrence: FR)
  Receive Date: 20140417
  Receipt Date: 20140417
  Transmission Date: 20141212
  Serious: Yes (Other)
  Sender: FDA-Public Use
  Company Number: FR-ACTELION-A-CH2014-97232

PATIENT
  Age: 20 Year
  Sex: Female

DRUGS (1)
  1. ZAVESCA [Suspect]
     Indication: NIEMANN-PICK DISEASE
     Route: 048

REACTIONS (4)
  - Crohn^s disease [Unknown]
  - Concomitant disease aggravated [Unknown]
  - Gastrointestinal fistula [Unknown]
  - Gastrointestinal disorder [Unknown]
